FAERS Safety Report 7537568-2 (Version None)
Quarter: 2011Q2

REPORT INFORMATION
  Report Type: 
  Country: None (occurrence: None)
  Receive Date: 20110603
  Receipt Date: 20110518
  Transmission Date: 20111010
  Serious: Yes (Hospitalization)
  Sender: FDA-Public Use
  Company Number: 2011MA006140

PATIENT
  Age: 54 Year
  Sex: Female

DRUGS (3)
  1. IOTROLAN [Concomitant]
  2. LIDOCAINE [Suspect]
     Indication: EPIDURAL ANAESTHESIA
     Dosage: 0.5 ML, 1X, IV
     Route: 042
  3. TRIAMCINOLONE [Concomitant]

REACTIONS (9)
  - BRAIN OEDEMA [None]
  - BLINDNESS TRANSIENT [None]
  - HEADACHE [None]
  - BLINDNESS CORTICAL [None]
  - DIZZINESS [None]
  - CENTRAL NERVOUS SYSTEM LESION [None]
  - CEREBRAL HYPERPERFUSION SYNDROME [None]
  - POSTERIOR REVERSIBLE ENCEPHALOPATHY SYNDROME [None]
  - NAUSEA [None]
